FAERS Safety Report 7725506-9 (Version None)
Quarter: 2011Q3

REPORT INFORMATION
  Report Type: 
  Country: None (occurrence: None)
  Receive Date: 20110902
  Receipt Date: 20110602
  Transmission Date: 20111222
  Serious: No
  Sender: FDA-Public Use
  Company Number: US-BRISTOL-MYERS SQUIBB COMPANY-15800766

PATIENT
  Age: 52 Year
  Sex: Male

DRUGS (2)
  1. KOMBIGLYZE XR [Suspect]
  2. DESVENLAFAXINE SUCCINATE [Suspect]

REACTIONS (2)
  - AGITATION [None]
  - AGGRESSION [None]
